FAERS Safety Report 23034710 (Version 4)
Quarter: 2024Q3

REPORT INFORMATION
  Report Type: Spontaneous
  Country: CA (occurrence: CA)
  Receive Date: 20231005
  Receipt Date: 20240923
  Transmission Date: 20241016
  Serious: Yes (Hospitalization, Other)
  Sender: GLAXOSMITHKLINE
  Company Number: CA-GLAXOSMITHKLINE-CA2023AMR134057

PATIENT

DRUGS (8)
  1. FLUTICASONE FUROATE [Suspect]
     Active Substance: FLUTICASONE FUROATE
     Indication: Asthma
     Dosage: UNK
     Route: 055
  2. DUPILUMAB [Suspect]
     Active Substance: DUPILUMAB
     Indication: Asthma
     Dosage: UNK
     Route: 065
  3. MIRTAZAPINE [Suspect]
     Active Substance: MIRTAZAPINE
     Indication: Product used for unknown indication
     Dosage: UNK
     Route: 065
  4. OMALIZUMAB [Suspect]
     Active Substance: OMALIZUMAB
     Indication: Asthma
     Dosage: UNK
  5. PREDNISONE [Suspect]
     Active Substance: PREDNISONE
     Indication: Product used for unknown indication
     Dosage: 20 MG, QD
     Route: 065
  6. TIOTROPIUM [Suspect]
     Active Substance: TIOTROPIUM
     Indication: Asthma
     Dosage: UNK
     Route: 055
  7. VILANTEROL [Suspect]
     Active Substance: VILANTEROL
     Indication: Asthma
     Dosage: UNK
     Route: 055
  8. OXYGEN [Suspect]
     Active Substance: OXYGEN
     Indication: Asthma
     Dosage: 3 L
     Route: 045

REACTIONS (9)
  - Maternal exposure during pregnancy [Unknown]
  - Live birth [Unknown]
  - Diabetes mellitus [Unknown]
  - Therapeutic product ineffective [Unknown]
  - Gestational hypertension [Unknown]
  - Maternal exposure before pregnancy [Unknown]
  - Premature delivery [Unknown]
  - Steroid diabetes [Unknown]
  - Exposure during pregnancy [Unknown]
